FAERS Safety Report 25980352 (Version 1)
Quarter: 2025Q4

REPORT INFORMATION
  Report Type: Report from Study
  Country: US (occurrence: US)
  Receive Date: 20251030
  Receipt Date: 20251030
  Transmission Date: 20260118
  Serious: Yes (Life-Threatening, Hospitalization)
  Sender: BAUSCH AND LOMB
  Company Number: US-BAUSCH-BH-2025-018939

PATIENT
  Age: 52 Year
  Sex: Female

DRUGS (2)
  1. XIFAXAN [Suspect]
     Active Substance: RIFAXIMIN
     Indication: Hepatic encephalopathy
     Dosage: 1 PILL A DAY
     Route: 065
     Dates: end: 20251020
  2. XIFAXAN [Suspect]
     Active Substance: RIFAXIMIN
     Dosage: 2 PILLS A DAY
     Route: 065
     Dates: start: 202510

REACTIONS (6)
  - Hospitalisation [Unknown]
  - Confusional state [Unknown]
  - Therapy interrupted [Unknown]
  - Insurance issue [Unknown]
  - Product use issue [Unknown]
  - Intentional underdose [Unknown]

NARRATIVE: CASE EVENT DATE: 20251001
